FAERS Safety Report 4724908-2 (Version None)
Quarter: 2005Q3

REPORT INFORMATION
  Report Type: 
  Country: None (occurrence: None)
  Receive Date: 20050726
  Receipt Date: 20050715
  Transmission Date: 20060218
  Serious: Yes (Hospitalization)
  Sender: FDA-Public Use
  Company Number: US-JNJFOC-20050703549

PATIENT
  Sex: Female
  Weight: 90.72 kg

DRUGS (13)
  1. DURAGESIC-100 [Suspect]
     Route: 062
     Dates: start: 20040701
  2. PROCARDIA XL [Concomitant]
     Indication: HYPERTENSION
     Route: 048
     Dates: start: 19870101
  3. MOBIC [Concomitant]
     Indication: ARTHRITIS
     Route: 048
     Dates: start: 20040801
  4. PREDNISONE [Concomitant]
     Indication: ARTHRITIS
     Route: 048
     Dates: start: 20040801
  5. METHOTREXATE [Concomitant]
     Indication: ARTHRITIS
     Route: 048
  6. NEXIUM [Concomitant]
     Route: 048
     Dates: start: 20040801
  7. HYDROXYCHLOROQUINE SULFATE [Concomitant]
     Indication: ARTHRITIS
     Route: 048
     Dates: start: 20040801
  8. GLYBURIDE [Concomitant]
     Dosage: 1.25/2.50 MG, 2 IN 24 HOURS, ORAL
     Route: 048
     Dates: start: 20000101
  9. LIPITOR [Concomitant]
     Route: 048
     Dates: start: 19930101
  10. AMITRIPTYLINE HCL [Concomitant]
     Indication: INSOMNIA
     Route: 048
     Dates: start: 19960101
  11. NEURONTIN [Concomitant]
     Route: 048
     Dates: start: 19970101
  12. ACTIQ [Concomitant]
     Indication: PAIN
     Route: 048
     Dates: start: 20020101
  13. FOLCAPS [Concomitant]
     Route: 048
     Dates: start: 20050601

REACTIONS (1)
  - PNEUMONIA [None]
